FAERS Safety Report 7586706-4 (Version None)
Quarter: 2011Q2

REPORT INFORMATION
  Report Type: 
  Country: None (occurrence: None)
  Receive Date: 20110627
  Receipt Date: 20110606
  Transmission Date: 20111010
  Serious: Yes (Life-Threatening)
  Sender: FDA-Public Use
  Company Number: 54973 AE # 482

PATIENT
  Sex: Male

DRUGS (1)
  1. QUININE SULFATE [Suspect]
     Indication: MUSCLE SPASMS

REACTIONS (3)
  - ASTHENIA [None]
  - ARRHYTHMIA [None]
  - DYSPNOEA [None]
